FAERS Safety Report 7273583-4 (Version None)
Quarter: 2011Q1

REPORT INFORMATION
  Report Type: 
  Country: None (occurrence: None)
  Receive Date: 20110203
  Receipt Date: 20100902
  Transmission Date: 20110831
  Serious: No
  Sender: FDA-Public Use
  Company Number: US-ABBOTT-10P-163-0623692-00

PATIENT
  Sex: Female

DRUGS (7)
  1. AVAPRO [Concomitant]
     Indication: PRODUCT USED FOR UNKNOWN INDICATION
  2. SYNTHROID [Suspect]
     Indication: THYROIDECTOMY
  3. HYDROCHLOROTHIAZIDE [Concomitant]
     Indication: PRODUCT USED FOR UNKNOWN INDICATION
  4. CASCITIROL [Concomitant]
     Indication: PRODUCT USED FOR UNKNOWN INDICATION
  5. SYNTHROID [Suspect]
     Indication: HYPOTHYROIDISM
     Dates: start: 20090101
  6. GLIPIZIDE [Concomitant]
     Indication: PRODUCT USED FOR UNKNOWN INDICATION
  7. METFORMIN [Concomitant]
     Indication: PRODUCT USED FOR UNKNOWN INDICATION

REACTIONS (8)
  - SENSATION OF HEAVINESS [None]
  - ARTHRALGIA [None]
  - FATIGUE [None]
  - DRUG INEFFECTIVE [None]
  - NASOPHARYNGITIS [None]
  - PAIN IN EXTREMITY [None]
  - FEELING ABNORMAL [None]
  - MALAISE [None]
